FAERS Safety Report 4837689-9 (Version None)
Quarter: 2005Q4

REPORT INFORMATION
  Report Type: 
  Country: None (occurrence: None)
  Receive Date: 20051128
  Receipt Date: 20051004
  Transmission Date: 20060501
  Serious: Yes (Hospitalization, Disabling)
  Sender: FDA-Public Use
  Company Number: US-MERCK-0510USA02246

PATIENT
  Age: 62 Year
  Sex: Female
  Weight: 70 kg

DRUGS (26)
  1. VIOXX [Suspect]
     Indication: ARTHRITIS
     Route: 048
     Dates: start: 20000712, end: 20030914
  2. HYDROCHLOROTHIAZIDE [Concomitant]
     Route: 065
  3. INSULIN [Concomitant]
     Route: 065
  4. AMARYL [Concomitant]
     Route: 065
  5. DILTIAZEM HYDROCHLORIDE [Concomitant]
     Route: 065
  6. HUMULIN [Concomitant]
     Route: 065
  7. CIPRO [Concomitant]
     Route: 065
  8. BACTROBAN [Concomitant]
     Route: 065
  9. DIFLUCAN [Concomitant]
     Route: 065
  10. AVANDIA [Concomitant]
     Route: 065
  11. ALLEGRA [Concomitant]
     Route: 065
  12. ZITHROMAX [Concomitant]
     Route: 065
  13. LOTREL [Concomitant]
     Route: 065
  14. CYCLOBENZAPRINE HYDROCHLORIDE [Concomitant]
     Route: 065
  15. ALTACE [Concomitant]
     Route: 065
  16. LONOX [Concomitant]
     Route: 065
  17. CEFTIN [Concomitant]
     Route: 065
  18. FLONASE [Concomitant]
     Route: 065
  19. ERYTHROMYCIN [Concomitant]
     Route: 065
  20. OXYCODONE AND ACETAMINOPHEN [Concomitant]
     Route: 065
  21. PATANOL [Concomitant]
     Route: 065
  22. FUROSEMIDE [Concomitant]
     Route: 065
  23. AMITRIPTYLIN [Concomitant]
     Route: 065
  24. KLOR-CON [Concomitant]
     Route: 065
  25. ZOCOR [Concomitant]
     Route: 065
  26. [THERAPY UNSPECIFIED] [Concomitant]
     Route: 065

REACTIONS (6)
  - ANKLE FRACTURE [None]
  - BACK INJURY [None]
  - BLOOD PRESSURE INCREASED [None]
  - CEREBROVASCULAR ACCIDENT [None]
  - CHEST PAIN [None]
  - PALPITATIONS [None]
